FAERS Safety Report 5288602-4 (Version None)
Quarter: 2007Q2

REPORT INFORMATION
  Report Type: 
  Country: None (occurrence: None)
  Receive Date: 20070405
  Receipt Date: 20070322
  Transmission Date: 20071010
  Serious: Yes (Hospitalization)
  Sender: FDA-Public Use
  Company Number: DE-GENENTECH-238468

PATIENT
  Sex: Male
  Weight: 106 kg

DRUGS (3)
  1. BEVACIZUMAB [Suspect]
     Indication: COLORECTAL CANCER
     Dosage: 700 MG, 2/WEEK
     Route: 042
     Dates: start: 20061019
  2. CAPECITABINE [Suspect]
     Indication: COLORECTAL CANCER
     Dosage: 1500 MG, UNK
     Route: 048
     Dates: start: 20061019, end: 20070304
  3. OXALIPLATIN [Suspect]
     Indication: COLORECTAL CANCER
     Dosage: 250 MG, 3/WEEK
     Route: 042
     Dates: start: 20061019

REACTIONS (7)
  - ABDOMINAL PAIN [None]
  - ALANINE AMINOTRANSFERASE INCREASED [None]
  - ASPARTATE AMINOTRANSFERASE INCREASED [None]
  - BLOOD CREATININE INCREASED [None]
  - BLOOD LACTATE DEHYDROGENASE INCREASED [None]
  - LIVER FUNCTION TEST ABNORMAL [None]
  - RENAL FUNCTION TEST ABNORMAL [None]
